FAERS Safety Report 5911060-0 (Version None)
Quarter: 2008Q4

REPORT INFORMATION
  Report Type: 
  Country: None (occurrence: None)
  Receive Date: 20081007
  Receipt Date: 20070622
  Transmission Date: 20090506
  Serious: No
  Sender: FDA-Public Use
  Company Number: US-BRISTOL-MYERS SQUIBB COMPANY-13572573

PATIENT
  Sex: Female

DRUGS (3)
  1. AVAPRO [Suspect]
  2. CALCIUM [Concomitant]
  3. TENORMIN [Concomitant]

REACTIONS (4)
  - HAEMATOCRIT INCREASED [None]
  - HAEMOGLOBIN INCREASED [None]
  - RED BLOOD CELL COUNT INCREASED [None]
  - URINE OUTPUT INCREASED [None]
